FAERS Safety Report 12599153 (Version 1)
Quarter: 2016Q3

REPORT INFORMATION
  Report Type: Spontaneous
  Country: US (occurrence: US)
  Receive Date: 20160727
  Receipt Date: 20160727
  Transmission Date: 20161109
  Serious: No
  Sender: FDA-Public Use
  Company Number: US-BEH-2016071476

PATIENT
  Sex: Female
  Weight: 55.33 kg

DRUGS (16)
  1. FIORICET [Concomitant]
     Active Substance: ACETAMINOPHEN\BUTALBITAL\CAFFEINE
  2. OXYGEN. [Concomitant]
     Active Substance: OXYGEN
  3. SPIRIVA [Concomitant]
     Active Substance: TIOTROPIUM BROMIDE MONOHYDRATE
  4. DOXYCYCLINE. [Concomitant]
     Active Substance: DOXYCYCLINE
  5. COZAAR [Concomitant]
     Active Substance: LOSARTAN POTASSIUM
  6. LINZESS [Concomitant]
     Active Substance: LINACLOTIDE
  7. ASPIRIN. [Concomitant]
     Active Substance: ASPIRIN
  8. ZEMAIRA [Suspect]
     Active Substance: .ALPHA.1-PROTEINASE INHIBITOR HUMAN
     Indication: ALPHA-1 ANTI-TRYPSIN DEFICIENCY
     Dosage: 60 MG/KG, QW
     Route: 042
     Dates: start: 20121114
  9. DIPHENHYDRAMINE. [Concomitant]
     Active Substance: DIPHENHYDRAMINE
  10. SODIUM CHLORIDE. [Concomitant]
     Active Substance: SODIUM CHLORIDE
  11. ADVAIR HFA [Concomitant]
     Active Substance: FLUTICASONE PROPIONATE\SALMETEROL XINAFOATE
  12. METAMUCIL [Concomitant]
     Active Substance: PLANTAGO SEED
  13. CRESTOR [Concomitant]
     Active Substance: ROSUVASTATIN CALCIUM
  14. COREG [Concomitant]
     Active Substance: CARVEDILOL
  15. ATIVAN [Concomitant]
     Active Substance: LORAZEPAM
  16. EPIPEN [Concomitant]
     Active Substance: EPINEPHRINE

REACTIONS (1)
  - Back pain [Recovering/Resolving]
